FAERS Safety Report 14207916 (Version 1)
Quarter: 2017Q4

REPORT INFORMATION
  Report Type: Spontaneous
  Country: IT (occurrence: IT)
  Receive Date: 20171121
  Receipt Date: 20171121
  Transmission Date: 20180321
  Serious: Yes (Other)
  Sender: FDA-Public Use
  Company Number: IT-AUROBINDO-AUR-APL-2017-43619

PATIENT
  Age: 24 Year
  Sex: Female

DRUGS (1)
  1. LEVOFLOXACIN FILMCOATED TABLET [Suspect]
     Active Substance: LEVOFLOXACIN
     Indication: CYSTITIS HAEMORRHAGIC
     Dosage: 1000 MG, TOTAL
     Route: 048
     Dates: start: 20170925, end: 20170926

REACTIONS (6)
  - Vertigo [Recovering/Resolving]
  - Retching [Recovering/Resolving]
  - Abdominal pain upper [Recovering/Resolving]
  - Cold sweat [Recovering/Resolving]
  - Drug intolerance [Recovering/Resolving]
  - Tremor [Recovering/Resolving]

NARRATIVE: CASE EVENT DATE: 20170929
